FAERS Safety Report 4575119-5 (Version None)
Quarter: 2005Q1

REPORT INFORMATION
  Report Type: 
  Country: None (occurrence: None)
  Receive Date: 20050208
  Receipt Date: 20050127
  Transmission Date: 20050727
  Serious: Yes (Hospitalization)
  Sender: FDA-Public Use
  Company Number: FR-BRISTOL-MYERS SQUIBB COMPANY-12840716

PATIENT
  Age: 83 Year
  Sex: Female

DRUGS (12)
  1. ECAZIDE TABS 50 MG/25 MG [Suspect]
     Route: 048
     Dates: end: 20041215
  2. TOPALGIC [Suspect]
     Route: 048
     Dates: start: 20041129, end: 20041230
  3. FLUCONAZOLE [Suspect]
     Route: 048
     Dates: start: 20041127, end: 20041230
  4. TAHOR [Suspect]
     Route: 048
     Dates: end: 20041225
  5. COVERSYL [Suspect]
     Dates: start: 20041215, end: 20041230
  6. MOPRAL [Concomitant]
     Dates: start: 20050103
  7. INSULIN HUMAN [Concomitant]
     Dates: start: 20041127, end: 20041227
  8. LANSOYL [Concomitant]
  9. DUPHALAC [Concomitant]
     Dates: end: 20041127
  10. STABLON [Concomitant]
     Dates: start: 20041212
  11. PRAXILENE [Concomitant]
  12. BISOPROLOL FUMARATE [Concomitant]

REACTIONS (6)
  - CEREBROVASCULAR ACCIDENT [None]
  - FALL [None]
  - HUMERUS FRACTURE [None]
  - HYPERKALAEMIA [None]
  - HYPONATRAEMIA [None]
  - MYOCARDIAL INFARCTION [None]
